FAERS Safety Report 6188745-7 (Version None)
Quarter: 2009Q2

REPORT INFORMATION
  Report Type: 
  Country: None (occurrence: None)
  Receive Date: 20090511
  Receipt Date: 20090511
  Transmission Date: 20091009
  Serious: Yes (Other)
  Sender: FDA-Public Use
  Company Number: None

PATIENT
  Age: 30 Year
  Sex: Female
  Weight: 71.6683 kg

DRUGS (1)
  1. FACTIVE [Suspect]
     Indication: LOWER RESPIRATORY TRACT INFECTION
     Dosage: 1 PILL ONCE A DAY PO
     Route: 048
     Dates: start: 20090427, end: 20090501

REACTIONS (1)
  - RASH GENERALISED [None]
